FAERS Safety Report 12773369 (Version 4)
Quarter: 2016Q4

REPORT INFORMATION
  Report Type: Report from Study
  Country: US (occurrence: US)
  Receive Date: 20160922
  Receipt Date: 20161208
  Transmission Date: 20170207
  Serious: Yes (Life-Threatening, Other)
  Sender: FDA-Public Use
  Company Number: US-ASTRAZENECA-2016SE20168

PATIENT
  Age: 20684 Day
  Sex: Female
  Weight: 62 kg

DRUGS (36)
  1. LYNPARZA [Suspect]
     Active Substance: OLAPARIB
     Indication: OVARIAN CANCER
     Dosage: 4 PILLS (200 MG) TWO TIMES A DAY
     Route: 048
     Dates: start: 20151215
  2. LYNPARZA [Suspect]
     Active Substance: OLAPARIB
     Indication: OVARIAN CANCER
     Route: 048
     Dates: start: 20151215, end: 201604
  3. COMPAZINE [Concomitant]
     Active Substance: PROCHLORPERAZINE MALEATE
     Route: 048
  4. PROGESTERONE. [Concomitant]
     Active Substance: PROGESTERONE
  5. OSPHENA [Concomitant]
     Active Substance: OSPEMIFENE
  6. STOOL SOFTLLNER [Concomitant]
  7. BIOTIN [Concomitant]
     Active Substance: BIOTIN
  8. LYNPARZA [Suspect]
     Active Substance: OLAPARIB
     Indication: OVARIAN CANCER
     Dosage: 800.0MG UNKNOWN
     Route: 048
     Dates: start: 2015
  9. LYNPARZA [Suspect]
     Active Substance: OLAPARIB
     Indication: OVARIAN CANCER
     Dosage: 400.0MG UNKNOWN
     Route: 048
     Dates: start: 20151216
  10. ZOFRAN [Concomitant]
     Active Substance: ONDANSETRON HYDROCHLORIDE
     Indication: NAUSEA
     Dosage: 8 MG TABLET 1 TABLET ORALLY EVERY 8 HOURS AS NEEDED
     Route: 048
  11. VIVELLE [Concomitant]
     Active Substance: ESTRADIOL
     Dosage: 0.05
  12. LYNPARZA [Suspect]
     Active Substance: OLAPARIB
     Indication: OVARIAN CANCER
     Dosage: 8 PILLS (400 MG) TWO TIMES A DAY
     Route: 048
     Dates: end: 201604
  13. ZOFRAN [Concomitant]
     Active Substance: ONDANSETRON HYDROCHLORIDE
     Indication: VOMITING
     Dosage: 8 MG TABLET 1 TABLET ORALLY EVERY 8 HOURS AS NEEDED
     Route: 048
  14. TAXOTERE [Concomitant]
     Active Substance: DOCETAXEL
     Dosage: 1.0DF UNKNOWN
     Dates: start: 20130719, end: 20130719
  15. NORVASC [Concomitant]
     Active Substance: AMLODIPINE BESYLATE
     Route: 048
  16. AVASTIN [Concomitant]
     Active Substance: BEVACIZUMAB
     Dates: start: 20141219
  17. DOXIL [Concomitant]
     Active Substance: DOXORUBICIN HYDROCHLORIDE
     Indication: NEOPLASM MALIGNANT
     Dates: start: 20151020, end: 20151208
  18. ALDACTONE [Concomitant]
     Active Substance: SPIRONOLACTONE
     Dosage: 25 MG EVERY 6 HOURS AS NEEDED
     Route: 048
  19. CALCIUM CITRATE [Concomitant]
     Active Substance: CALCIUM CITRATE
     Route: 048
  20. CARBO [Concomitant]
     Dates: start: 201307
  21. VIDAZA [Concomitant]
     Active Substance: AZACITIDINE
     Dosage: DAYS 1 THROUGH 5 EVERY 28 DAYS
     Route: 058
     Dates: start: 20160606
  22. PACLITAXEL. [Concomitant]
     Active Substance: PACLITAXEL
     Dates: start: 20130812, end: 20140324
  23. AVASTIN [Concomitant]
     Active Substance: BEVACIZUMAB
     Dates: start: 20150630
  24. PROCHLORPERAZINE. [Concomitant]
     Active Substance: PROCHLORPERAZINE
     Indication: NAUSEA
     Dosage: 10 MG TABLET 1 EVERY 6 HOURS AS NEEDED
     Route: 048
  25. DEADRON [Concomitant]
     Dosage: 20 MG AT 1 0 PM THE NIGHT BEFORE AND 20 MG AT 6 AM THE MORNING
  26. MAGNESIUM OXIDE. [Concomitant]
     Active Substance: MAGNESIUM OXIDE
  27. ATIVAN [Concomitant]
     Active Substance: LORAZEPAM
     Indication: ANXIETY
     Dosage: 1 MG TABLET 1 TABLET ORALLY EVERY 8 HOURS AS REQUIRED
     Route: 048
  28. MAGNESIUM OXIDE. [Concomitant]
     Active Substance: MAGNESIUM OXIDE
     Route: 048
  29. MIRALAX [Concomitant]
     Active Substance: POLYETHYLENE GLYCOL 3350
     Dosage: 17 GRAM ORALLY EVERY DAY MIX INTO 4-8 OZ. OF ANY HOT/COLD/ROOM TEMP. BEVERAGE AND DRINK IMMEDIATE...
  30. LYNPARZA [Suspect]
     Active Substance: OLAPARIB
     Indication: OVARIAN CANCER
     Route: 048
     Dates: start: 20151216
  31. GEMZAR [Concomitant]
     Active Substance: GEMCITABINE HYDROCHLORIDE
     Dates: start: 20141013, end: 20150420
  32. PROTONIX [Concomitant]
     Active Substance: PANTOPRAZOLE SODIUM
     Route: 048
  33. CRESTOR [Concomitant]
     Active Substance: ROSUVASTATIN CALCIUM
  34. TAXOL [Concomitant]
     Active Substance: PACLITAXEL
     Dates: start: 201307
  35. POTASSIUM CHLORIDE. [Concomitant]
     Active Substance: POTASSIUM CHLORIDE
     Indication: MUSCLE SPASMS
     Dosage: AS REQUIRED
  36. MYELODYSPLASTIC DRUG [Concomitant]

REACTIONS (5)
  - Glomerular filtration rate decreased [Unknown]
  - Malignant neoplasm progression [Unknown]
  - Myalgia [Not Recovered/Not Resolved]
  - Myelodysplastic syndrome [Unknown]
  - Arthralgia [Not Recovered/Not Resolved]

NARRATIVE: CASE EVENT DATE: 20160429
